FAERS Safety Report 23991756 (Version 1)
Quarter: 2024Q2

REPORT INFORMATION
  Report Type: Spontaneous
  Country: US (occurrence: None)
  Receive Date: 20240619
  Receipt Date: 20240619
  Transmission Date: 20240715
  Serious: No
  Sender: FDA-Public Use
  Company Number: 2024A130102

PATIENT
  Sex: Female

DRUGS (1)
  1. FASENRA [Suspect]
     Active Substance: BENRALIZUMAB
     Route: 058

REACTIONS (12)
  - Piloerection [Unknown]
  - Headache [Unknown]
  - Peripheral coldness [Unknown]
  - Dry mouth [Unknown]
  - Nausea [Unknown]
  - Dizziness [Unknown]
  - Chest discomfort [Unknown]
  - Dysphagia [Unknown]
  - Hypersomnia [Unknown]
  - Feeling abnormal [Unknown]
  - Hypersensitivity [Unknown]
  - Immune system disorder [Unknown]
